FAERS Safety Report 5778136-2 (Version None)
Quarter: 2008Q2

REPORT INFORMATION
  Report Type: 
  Country: None (occurrence: None)
  Receive Date: 20080619
  Receipt Date: 20080613
  Transmission Date: 20081010
  Serious: Yes (Death)
  Sender: FDA-Public Use
  Company Number: DE-JNJFOC-20080603117

PATIENT
  Age: 83 Year
  Sex: Female

DRUGS (8)
  1. RISPERDAL [Suspect]
     Route: 048
  2. RISPERDAL [Suspect]
     Route: 048
  3. RISPERDAL [Suspect]
     Indication: DRUG USE FOR UNKNOWN INDICATION
     Route: 048
  4. AXURA [Concomitant]
     Route: 048
  5. AXURA [Concomitant]
     Route: 048
  6. TOREM [Concomitant]
     Route: 048
  7. TOREM [Concomitant]
     Route: 048
  8. LACTULOSE [Concomitant]
     Route: 048

REACTIONS (5)
  - DEMENTIA ALZHEIMER'S TYPE [None]
  - DYSPNOEA [None]
  - ELECTROMECHANICAL DISSOCIATION [None]
  - OEDEMA PERIPHERAL [None]
  - SYNCOPE [None]
